FAERS Safety Report 8008853-5 (Version None)
Quarter: 2011Q4

REPORT INFORMATION
  Report Type: 
  Country: None (occurrence: None)
  Receive Date: 20111221
  Receipt Date: 20111213
  Transmission Date: 20120403
  Serious: Yes (Other)
  Sender: FDA-Public Use
  Company Number: DEP_00538_2011

PATIENT
  Sex: Female

DRUGS (2)
  1. GRALISE [Suspect]
     Indication: OFF LABEL USE
     Dosage: (DF ORAL)
     Route: 048
  2. GRALISE [Suspect]
     Indication: PAIN
     Dosage: (DF ORAL)
     Route: 048

REACTIONS (5)
  - AGITATION [None]
  - CONFUSIONAL STATE [None]
  - AMNESIA [None]
  - DRY MOUTH [None]
  - INADEQUATE ANALGESIA [None]
